FAERS Safety Report 6914335-1 (Version None)
Quarter: 2010Q3

REPORT INFORMATION
  Report Type: 
  Country: None (occurrence: None)
  Receive Date: 20100804
  Receipt Date: 20100804
  Transmission Date: 20110219
  Serious: Yes (Other)
  Sender: FDA-Public Use
  Company Number: None

PATIENT
  Sex: Female
  Weight: 58.0604 kg

DRUGS (4)
  1. MELOXICAM [Suspect]
     Indication: ARTHRALGIA
     Dosage: 1 TABLET DAILY BY MOUTH
     Route: 048
  2. MELOXICAM [Suspect]
     Indication: ARTHRITIS
     Dosage: 1 TABLET DAILY BY MOUTH
     Route: 048
  3. MELOXICAM [Suspect]
     Indication: INTERVERTEBRAL DISC COMPRESSION
     Dosage: 1 TABLET DAILY BY MOUTH
     Route: 048
  4. MELOXICAM [Suspect]
     Indication: INTERVERTEBRAL DISC PROTRUSION
     Dosage: 1 TABLET DAILY BY MOUTH
     Route: 048

REACTIONS (1)
  - NO ADVERSE EVENT [None]
